FAERS Safety Report 8404808-7 (Version None)
Quarter: 2012Q2

REPORT INFORMATION
  Report Type: 
  Country: None (occurrence: None)
  Receive Date: 20120601
  Receipt Date: 20120529
  Transmission Date: 20120825
  Serious: Yes (Disabling, Other)
  Sender: FDA-Public Use
  Company Number: US-MERCK-1107USA01627

PATIENT
  Age: 66 Year
  Sex: Female
  Weight: 81 kg

DRUGS (2)
  1. FOSAMAX [Suspect]
     Indication: HYSTERECTOMY
     Route: 048
     Dates: start: 19970101, end: 20120521
  2. FOSAMAX [Suspect]
     Indication: OSTEOPOROSIS
     Route: 048
     Dates: start: 19970101, end: 20120521

REACTIONS (3)
  - SKIN INDURATION [None]
  - OSTEONECROSIS OF JAW [None]
  - OSTEONECROSIS [None]
